FAERS Safety Report 14104480 (Version 1)
Quarter: 2017Q4

REPORT INFORMATION
  Report Type: Spontaneous
  Country: US (occurrence: US)
  Receive Date: 20171018
  Receipt Date: 20171018
  Transmission Date: 20180321
  Serious: No
  Sender: FDA-Public Use
  Company Number: US-AMGEN-USASP2017119733

PATIENT
  Age: 62 Year
  Sex: Female
  Weight: 54.43 kg

DRUGS (6)
  1. ROSUVASTATIN. [Concomitant]
     Active Substance: ROSUVASTATIN
     Dosage: UNK UNK, QOD
  2. VITAMIN D3 [Concomitant]
     Active Substance: CHOLECALCIFEROL
     Dosage: 2000 IU, BID
  3. NATURE-THROID [Concomitant]
     Active Substance: THYROID, PORCINE
  4. SIMVASTATIN. [Concomitant]
     Active Substance: SIMVASTATIN
     Dosage: UNK UNK, QD
  5. CITRACAL [Concomitant]
     Active Substance: CALCIUM CITRATE
     Dosage: 500 MG, BID
  6. PROLIA [Suspect]
     Active Substance: DENOSUMAB
     Indication: OSTEOPOROSIS
     Dosage: Q6MO
     Route: 065
     Dates: start: 2014

REACTIONS (3)
  - Hypersensitivity [Unknown]
  - Hypertension [Recovered/Resolved]
  - Migraine [Unknown]
